FAERS Safety Report 16059531 (Version 1)
Quarter: 2019Q1

REPORT INFORMATION
  Report Type: Other
  Country: CN (occurrence: CN)
  Receive Date: 20190311
  Receipt Date: 20190311
  Transmission Date: 20190418
  Serious: Yes (Hospitalization)
  Sender: FDA-Public Use
  Company Number: CN-GE HEALTHCARE LIFE SCIENCES-2019CSU001278

PATIENT

DRUGS (2)
  1. VISIPAQUE [Suspect]
     Active Substance: IODIXANOL
     Indication: CORONARY ARTERY DISEASE
  2. VISIPAQUE [Suspect]
     Active Substance: IODIXANOL
     Indication: ANGIOCARDIOGRAM
     Dosage: 16 G, SINGLE
     Route: 013
     Dates: start: 20181221, end: 20181221

REACTIONS (2)
  - Vision blurred [Recovering/Resolving]
  - Eye movement disorder [Recovering/Resolving]

NARRATIVE: CASE EVENT DATE: 20181221
